FAERS Safety Report 9216376 (Version 2)
Quarter: 2013Q2

REPORT INFORMATION
  Report Type: Report from Study
  Country: NZ (occurrence: NZ)
  Receive Date: 20130408
  Receipt Date: 20130517
  Transmission Date: 20140414
  Serious: Yes (Hospitalization, Other)
  Sender: FDA-Public Use
  Company Number: PHHY2013NZ033136

PATIENT
  Sex: Male

DRUGS (3)
  1. CLOZARIL [Suspect]
     Dosage: UNK
     Dates: start: 20100527
  2. CLOZARIL [Suspect]
     Dosage: UNK
  3. OLANZAPINE [Concomitant]

REACTIONS (2)
  - Mental impairment [Unknown]
  - Schizophrenia [Unknown]
